FAERS Safety Report 9872307 (Version 2)
Quarter: 2014Q1

REPORT INFORMATION
  Report Type: Report from Study
  Country: JP (occurrence: JP)
  Receive Date: 20140205
  Receipt Date: 20140205
  Transmission Date: 20141002
  Serious: Yes (Other)
  Sender: FDA-Public Use
  Company Number: JP-ROCHE-1046332

PATIENT
  Sex: 0

DRUGS (5)
  1. PEG-INTERFERON ALFA 2A [Suspect]
     Indication: HEPATITIS C
     Route: 058
  2. RIBAVIRIN [Suspect]
     Indication: HEPATITIS C
     Dosage: PATIENTS WEIGHING 60 KG
     Route: 065
  3. RIBAVIRIN [Suspect]
     Dosage: PATIENTS WEIGHING MORE THAN 60 KG TO 80 KG,
     Route: 065
  4. RIBAVIRIN [Suspect]
     Dosage: PATIENTS WEIGHING MORE THAN 80 KG,
     Route: 065
  5. BLINDED DACLATASVIR [Suspect]
     Indication: HEPATITIS C
     Route: 048

REACTIONS (8)
  - Leukopenia [Unknown]
  - Lymphopenia [Unknown]
  - Neutropenia [Unknown]
  - Anaemia [Unknown]
  - Thrombocytopenia [Unknown]
  - Aspartate aminotransferase increased [Unknown]
  - Pancreatitis acute [Unknown]
  - Back pain [Unknown]
